FAERS Safety Report 16614387 (Version 1)
Quarter: 2019Q3

REPORT INFORMATION
  Report Type: Spontaneous
  Country: US (occurrence: US)
  Receive Date: 20190723
  Receipt Date: 20190723
  Transmission Date: 20191004
  Serious: No
  Sender: FDA-Public Use
  Company Number: US-ENDO PHARMACEUTICALS INC-2019-102401

PATIENT
  Sex: Female

DRUGS (4)
  1. GABAPENTIN. [Concomitant]
     Active Substance: GABAPENTIN
     Indication: PRODUCT USED FOR UNKNOWN INDICATION
     Dosage: UNK UNKNOWN, UNKNOWN
     Route: 065
  2. TRANYLCYPROMINE SULFATE. [Suspect]
     Active Substance: TRANYLCYPROMINE SULFATE
     Dosage: 4 DF, DAILY
     Route: 048
  3. TRANYLCYPROMINE SULFATE. [Suspect]
     Active Substance: TRANYLCYPROMINE SULFATE
     Indication: BIPOLAR DISORDER
     Dosage: 2 DF, DAILY
     Route: 048
  4. TRANYLCYPROMINE SULFATE. [Suspect]
     Active Substance: TRANYLCYPROMINE SULFATE
     Dosage: 3 DF, DAILY
     Route: 048

REACTIONS (5)
  - Vomiting [Recovering/Resolving]
  - Therapeutic product effect decreased [Unknown]
  - Somnolence [Unknown]
  - Tremor [Unknown]
  - Nausea [Recovering/Resolving]
